FAERS Safety Report 23385213 (Version 1)
Quarter: 2024Q1

REPORT INFORMATION
  Report Type: Spontaneous
  Country: US (occurrence: None)
  Receive Date: 20240110
  Receipt Date: 20240110
  Transmission Date: 20240410
  Serious: Yes (Disabling, Other)
  Sender: FDA-Public Use
  Company Number: 2024A004089

PATIENT
  Sex: Male

DRUGS (1)
  1. BRILINTA [Suspect]
     Active Substance: TICAGRELOR
     Dosage: UNKNOWN
     Route: 048

REACTIONS (5)
  - Disability [Unknown]
  - Myocardial infarction [Unknown]
  - Chest pain [Unknown]
  - Venous occlusion [Unknown]
  - Atrioventricular block [Unknown]
